FAERS Safety Report 9172933 (Version 1)
Quarter: 2013Q1

REPORT INFORMATION
  Report Type: Spontaneous
  Country: US (occurrence: US)
  Receive Date: 20130320
  Receipt Date: 20130320
  Transmission Date: 20140127
  Serious: No
  Sender: FDA-Public Use
  Company Number: US-009507513-1207USA008101

PATIENT
  Sex: Female
  Weight: 75.28 kg

DRUGS (7)
  1. IMPLANON [Suspect]
     Indication: CONTRACEPTION
     Dosage: 1 DF, UNK
     Route: 059
     Dates: start: 20120312
  2. ATENOLOL [Concomitant]
  3. IBUPROFEN [Concomitant]
  4. NEXIUM [Concomitant]
  5. RANITIDINE [Concomitant]
  6. SINGULAIR [Concomitant]
  7. ALLEGRA [Concomitant]
     Dosage: UNK

REACTIONS (2)
  - Ventricular extrasystoles [Not Recovered/Not Resolved]
  - Arrhythmia [Not Recovered/Not Resolved]
